FAERS Safety Report 4621694-1 (Version None)
Quarter: 2005Q1

REPORT INFORMATION
  Report Type: 
  Country: None (occurrence: None)
  Receive Date: 20050329
  Receipt Date: 20050311
  Transmission Date: 20050727
  Serious: Yes (Other)
  Sender: FDA-Public Use
  Company Number: IE-BOEHRINGER INGELHEIM PHARMACEUTICALS, INC.-2005-UK-00428IE

PATIENT
  Age: 78 Year
  Sex: Male

DRUGS (1)
  1. PRAMIPEXOLE (UK) [Suspect]
     Indication: PARKINSON'S DISEASE
     Dosage: 0.088MG  3 TIMES DAILY
     Route: 048

REACTIONS (5)
  - COORDINATION ABNORMAL [None]
  - FATIGUE [None]
  - GAIT DISTURBANCE [None]
  - SALIVARY HYPERSECRETION [None]
  - SPEECH DISORDER [None]
